FAERS Safety Report 25738768 (Version 2)
Quarter: 2025Q4

REPORT INFORMATION
  Report Type: Spontaneous
  Country: JP (occurrence: JP)
  Receive Date: 20250829
  Receipt Date: 20251028
  Transmission Date: 20260117
  Serious: Yes (Other)
  Sender: MERCK SHARP & DOHME LLC
  Company Number: JP-ONO-2025JP015247

PATIENT
  Age: 76 Year
  Sex: Male

DRUGS (13)
  1. EMEND [Suspect]
     Active Substance: APREPITANT
     Indication: Prophylaxis of nausea and vomiting
     Dosage: UNK, EVERYDAY
     Route: 048
     Dates: start: 20250820, end: 20250821
  2. DECADRON [Concomitant]
     Active Substance: DEXAMETHASONE
     Dosage: UNK
  3. BIFIDOBACTERIUM SPP. [Concomitant]
     Active Substance: BIFIDOBACTERIUM SPP.
     Dosage: UNK
  4. SENNOSIDES [Concomitant]
     Active Substance: SENNOSIDES
     Dosage: UNK
  5. MARZULENE [Concomitant]
     Dosage: UNK
  6. BEVACIZUMAB [Suspect]
     Active Substance: BEVACIZUMAB
     Dosage: 240 MG
     Dates: start: 20250820
  7. OPALMON [Suspect]
     Active Substance: LIMAPROST
     Indication: Product used for unknown indication
     Dosage: UNK
     Route: 048
  8. DOMPERIDONE [Concomitant]
     Active Substance: DOMPERIDONE
     Dosage: UNK
  9. FLUOROURACIL [Suspect]
     Active Substance: FLUOROURACIL
     Dosage: 500 MG
     Route: 042
     Dates: start: 20250820
  10. FLUOROURACIL [Suspect]
     Active Substance: FLUOROURACIL
     Dosage: 3000 MG
     Route: 042
     Dates: start: 20250820
  11. NEXIUM [Concomitant]
     Active Substance: ESOMEPRAZOLE MAGNESIUM
     Dosage: UNK
  12. LEVOLEUCOVORIN CALCIUM [Suspect]
     Active Substance: LEVOLEUCOVORIN CALCIUM
     Dosage: 250 MG
     Dates: start: 20250820
  13. OXALIPLATIN [Suspect]
     Active Substance: OXALIPLATIN
     Dosage: 100 MG
     Dates: start: 20250820

REACTIONS (1)
  - Altered state of consciousness [Recovered/Resolved]

NARRATIVE: CASE EVENT DATE: 20250822
